FAERS Safety Report 8135159-6 (Version None)
Quarter: 2012Q1

REPORT INFORMATION
  Report Type: 
  Country: None (occurrence: None)
  Receive Date: 20120214
  Receipt Date: 20120211
  Transmission Date: 20120608
  Serious: No
  Sender: FDA-Public Use
  Company Number: US-PFIZER INC-2012037308

PATIENT
  Sex: Male

DRUGS (2)
  1. IBUPROFEN (ADVIL) [Suspect]
     Indication: INFLUENZA
     Dosage: UNK
  2. IBUPROFEN (ADVIL) [Suspect]
     Indication: PYREXIA

REACTIONS (1)
  - HALLUCINATION [None]
